FAERS Safety Report 6734119-7 (Version None)
Quarter: 2010Q2

REPORT INFORMATION
  Report Type: 
  Country: None (occurrence: None)
  Receive Date: 20100520
  Receipt Date: 20100512
  Transmission Date: 20101027
  Serious: Yes (Hospitalization, Other)
  Sender: FDA-Public Use
  Company Number: PT-BRISTOL-MYERS SQUIBB COMPANY-15103880

PATIENT
  Age: 64 Year
  Sex: Female
  Weight: 98 kg

DRUGS (4)
  1. REYATAZ [Suspect]
     Indication: HIV INFECTION
     Dosage: CAPSULE, HARD
     Route: 048
  2. NORVIR [Suspect]
     Indication: HIV INFECTION
     Dosage: CAPSULE,SOFT
     Route: 048
  3. SIMVASTATIN [Suspect]
     Indication: DYSLIPIDAEMIA
     Route: 048
     Dates: start: 20100316, end: 20100416
  4. TRUVADA [Concomitant]
     Indication: HIV INFECTION
     Dosage: DF= 200MG+245MG FILM-COATED TABLET
     Route: 048

REACTIONS (1)
  - RHABDOMYOLYSIS [None]
